FAERS Safety Report 24806926 (Version 1)
Quarter: 2025Q1

REPORT INFORMATION
  Report Type: Spontaneous
  Country: DE (occurrence: DE)
  Receive Date: 20250104
  Receipt Date: 20250104
  Transmission Date: 20250408
  Serious: Yes (Hospitalization)
  Sender: AMGEN
  Company Number: DE-PEI-202400029596

PATIENT
  Age: 74 Year
  Sex: Female

DRUGS (1)
  1. EVENITY [Suspect]
     Active Substance: ROMOSOZUMAB-AQQG
     Indication: Osteoporosis
     Route: 065
     Dates: start: 20241203

REACTIONS (3)
  - Hypertensive crisis [Unknown]
  - Epistaxis [Unknown]
  - Nausea [Unknown]

NARRATIVE: CASE EVENT DATE: 20241225
